FAERS Safety Report 17704893 (Version 2)
Quarter: 2020Q2

REPORT INFORMATION
  Report Type: Spontaneous
  Country: US (occurrence: US)
  Receive Date: 20200424
  Receipt Date: 20200428
  Transmission Date: 20200714
  Serious: Yes (Other)
  Sender: FDA-Public Use
  Company Number: US-HORIZON-KRY-0534-2020

PATIENT
  Age: 46 Year
  Sex: Male

DRUGS (3)
  1. KRYSTEXXA [Suspect]
     Active Substance: PEGLOTICASE
     Indication: GOUT
     Route: 042
     Dates: start: 20200403
  2. ALLOPURINOL. [Concomitant]
     Active Substance: ALLOPURINOL
  3. BENADRYL [Concomitant]
     Active Substance: DIPHENHYDRAMINE HYDROCHLORIDE
     Indication: PREMEDICATION

REACTIONS (12)
  - Peripheral swelling [Recovered/Resolved]
  - Erythema [Recovered/Resolved]
  - Tremor [Unknown]
  - Somnolence [Unknown]
  - Pyrexia [Recovered/Resolved]
  - Urticaria [Recovered/Resolved]
  - Chest pain [Unknown]
  - Gout [Unknown]
  - Nausea [Recovered/Resolved]
  - Medication error [Unknown]
  - Chills [Recovered/Resolved]
  - Product communication issue [Unknown]

NARRATIVE: CASE EVENT DATE: 202004
